FAERS Safety Report 10090059 (Version 1)
Quarter: 2014Q2

REPORT INFORMATION
  Report Type: Spontaneous
  Country: US (occurrence: US)
  Receive Date: 20140421
  Receipt Date: 20140421
  Transmission Date: 20141212
  Serious: Yes (Hospitalization)
  Sender: FDA-Public Use
  Company Number: US-B.I. PHARMACEUTICALS,INC./RIDGEFIELD-2014-BI-17343BP

PATIENT
  Sex: Female
  Weight: 67.58 kg

DRUGS (9)
  1. SPIRIVA [Suspect]
     Indication: CHRONIC OBSTRUCTIVE PULMONARY DISEASE
     Dosage: 18 MCG
     Route: 055
     Dates: start: 2009
  2. PRADAXA [Suspect]
     Indication: ATRIAL FIBRILLATION
     Dosage: 150 MG
     Route: 048
     Dates: start: 2012
  3. GABAPENTIN [Concomitant]
     Indication: NEUROPATHY PERIPHERAL
     Dosage: 1800 MG
     Route: 048
  4. LISINOPRIL [Concomitant]
     Indication: HYPERTENSION
     Dosage: 40 MG
     Route: 048
  5. CARVEDILOL [Concomitant]
     Indication: HYPERTENSION
     Dosage: 12.5 NR
     Route: 048
  6. ESTRADIOL [Concomitant]
     Indication: OSTEOPOROSIS PROPHYLAXIS
     Dosage: 0.5 MG
     Route: 048
  7. PROVERA [Concomitant]
     Indication: OSTEOPOROSIS PROPHYLAXIS
     Dosage: 2.5 MG
     Route: 048
  8. MECLIZINE [Concomitant]
     Indication: DIZZINESS
     Dosage: 75 MG
     Route: 048
  9. ADVAIR DISKUS [Concomitant]
     Indication: CHRONIC OBSTRUCTIVE PULMONARY DISEASE
     Dosage: STRENGTH: 250/50 MG; DAILY DOSE: 500/100 MG
     Route: 055
     Dates: start: 2009

REACTIONS (2)
  - Transient ischaemic attack [Recovered/Resolved]
  - Transient ischaemic attack [Recovered/Resolved]
